FAERS Safety Report 23739387 (Version 2)
Quarter: 2024Q2

REPORT INFORMATION
  Report Type: Spontaneous
  Country: US (occurrence: US)
  Receive Date: 20240413
  Receipt Date: 20240417
  Transmission Date: 20240716
  Serious: No
  Sender: FDA-Public Use
  Company Number: US-SA-SAC20240404001128

PATIENT
  Age: 40 Year
  Sex: Female

DRUGS (1)
  1. DUPIXENT [Suspect]
     Active Substance: DUPILUMAB
     Indication: Psoriasis
     Dosage: 300 MG, QOW
     Route: 058
     Dates: start: 202402, end: 2024

REACTIONS (12)
  - Decreased immune responsiveness [Unknown]
  - Cough [Unknown]
  - Nasopharyngitis [Unknown]
  - Sneezing [Unknown]
  - Chest discomfort [Unknown]
  - Nasal congestion [Unknown]
  - Back disorder [Unknown]
  - Skin sensitisation [Unknown]
  - Rash macular [Recovered/Resolved]
  - Skin haemorrhage [Unknown]
  - Contusion [Unknown]
  - Product use in unapproved indication [Unknown]

NARRATIVE: CASE EVENT DATE: 20240101
